FAERS Safety Report 4983845-9 (Version None)
Quarter: 2006Q2

REPORT INFORMATION
  Report Type: 
  Country: None (occurrence: None)
  Receive Date: 20060426
  Receipt Date: 20051209
  Transmission Date: 20061013
  Serious: Yes (Hospitalization)
  Sender: FDA-Public Use
  Company Number: US-MERCK-0512USA01710

PATIENT
  Age: 67 Year
  Sex: Male
  Weight: 124 kg

DRUGS (9)
  1. VIOXX [Suspect]
     Indication: BACK PAIN
     Route: 048
     Dates: start: 20000401, end: 20031201
  2. VIOXX [Suspect]
     Indication: PAIN IN EXTREMITY
     Route: 048
     Dates: start: 20000401, end: 20031201
  3. MONOPRIL [Concomitant]
     Indication: HYPERTENSION
     Route: 065
     Dates: start: 20000101
  4. TRIMOX [Concomitant]
     Route: 065
  5. BIAXIN [Concomitant]
     Route: 065
  6. METFORMIN [Concomitant]
     Indication: DIABETES MELLITUS
     Route: 065
  7. HYDROCODONE BITARTRATE + ACETAMINOPHEN [Concomitant]
     Route: 065
  8. HYDROCHLOROTHIAZIDE [Concomitant]
     Route: 065
  9. NALOXONE HYDROCHLORIDE AND PENTAZOCINE HYDROCHLORIDE [Concomitant]
     Route: 065

REACTIONS (1)
  - CEREBROVASCULAR ACCIDENT [None]
